FAERS Safety Report 14266908 (Version 3)
Quarter: 2020Q2

REPORT INFORMATION
  Report Type: Spontaneous
  Country: CA (occurrence: CA)
  Receive Date: 20171211
  Receipt Date: 20200608
  Transmission Date: 20200713
  Serious: Yes (Life-Threatening)
  Sender: FDA-Public Use
  Company Number: CA-ROCHE-2032904

PATIENT
  Age: 45 Year
  Sex: Female

DRUGS (138)
  1. DACLIZUMAB [Suspect]
     Active Substance: DACLIZUMAB
     Indication: TRANSPLANT
     Route: 042
  2. DACLIZUMAB [Suspect]
     Active Substance: DACLIZUMAB
     Route: 042
  3. DACLIZUMAB [Suspect]
     Active Substance: DACLIZUMAB
     Route: 042
  4. CELLCEPT [Suspect]
     Active Substance: MYCOPHENOLATE MOFETIL\MYCOPHENOLATE MOFETIL HYDROCHLORIDE
     Indication: TRANSPLANT
     Route: 048
  5. ANTITHYMOCYTE IMMUNOGLOBULIN (RABBIT) [Suspect]
     Active Substance: LAPINE T-LYMPHOCYTE IMMUNE GLOBULIN
     Route: 005
  6. ANTITHYMOCYTE IMMUNOGLOBULIN (RABBIT) [Suspect]
     Active Substance: LAPINE T-LYMPHOCYTE IMMUNE GLOBULIN
     Route: 065
  7. ANTITHYMOCYTE IMMUNOGLOBULIN (RABBIT) [Suspect]
     Active Substance: LAPINE T-LYMPHOCYTE IMMUNE GLOBULIN
     Route: 065
  8. ENBREL [Suspect]
     Active Substance: ETANERCEPT
     Route: 058
  9. ENBREL [Suspect]
     Active Substance: ETANERCEPT
     Route: 058
  10. ENBREL [Suspect]
     Active Substance: ETANERCEPT
     Route: 058
  11. ENBREL [Suspect]
     Active Substance: ETANERCEPT
     Route: 058
  12. ENBREL [Suspect]
     Active Substance: ETANERCEPT
     Route: 058
  13. ENBREL [Suspect]
     Active Substance: ETANERCEPT
     Route: 048
  14. PROGRAF [Suspect]
     Active Substance: TACROLIMUS
     Route: 048
  15. PROGRAF [Suspect]
     Active Substance: TACROLIMUS
     Route: 048
  16. PROGRAF [Suspect]
     Active Substance: TACROLIMUS
     Route: 048
  17. PROGRAF [Suspect]
     Active Substance: TACROLIMUS
     Route: 048
  18. PROGRAF [Suspect]
     Active Substance: TACROLIMUS
     Route: 048
  19. SULFASALAZINE. [Suspect]
     Active Substance: SULFASALAZINE
     Indication: RHEUMATOID ARTHRITIS
     Route: 065
  20. TACROLIMUS. [Suspect]
     Active Substance: TACROLIMUS
     Route: 048
  21. TACROLIMUS. [Suspect]
     Active Substance: TACROLIMUS
     Route: 048
  22. TACROLIMUS. [Suspect]
     Active Substance: TACROLIMUS
     Route: 048
  23. ANTITHYMOCYTE IMMUNOGLOBULIN [Suspect]
     Active Substance: THYMOCYTE IMMUNE GLOBULIN NOS
     Route: 065
  24. DACLIZUMAB [Suspect]
     Active Substance: DACLIZUMAB
     Route: 042
  25. DACLIZUMAB [Suspect]
     Active Substance: DACLIZUMAB
     Route: 042
  26. CELLCEPT [Suspect]
     Active Substance: MYCOPHENOLATE MOFETIL\MYCOPHENOLATE MOFETIL HYDROCHLORIDE
     Route: 048
  27. ANTITHYMOCYTE IMMUNOGLOBULIN (RABBIT) [Suspect]
     Active Substance: LAPINE T-LYMPHOCYTE IMMUNE GLOBULIN
     Indication: TRANSPLANT
     Route: 005
  28. ANTITHYMOCYTE IMMUNOGLOBULIN (RABBIT) [Suspect]
     Active Substance: LAPINE T-LYMPHOCYTE IMMUNE GLOBULIN
     Route: 005
  29. ENBREL [Suspect]
     Active Substance: ETANERCEPT
     Route: 048
  30. ENBREL [Suspect]
     Active Substance: ETANERCEPT
     Route: 058
  31. ENBREL [Suspect]
     Active Substance: ETANERCEPT
     Route: 058
  32. PROGRAF [Suspect]
     Active Substance: TACROLIMUS
     Indication: TRANSPLANT
     Route: 048
  33. PROGRAF [Suspect]
     Active Substance: TACROLIMUS
     Route: 048
  34. PROGRAF [Suspect]
     Active Substance: TACROLIMUS
     Route: 048
  35. PROGRAF [Suspect]
     Active Substance: TACROLIMUS
     Route: 048
  36. TACROLIMUS. [Suspect]
     Active Substance: TACROLIMUS
     Route: 065
  37. TACROLIMUS. [Suspect]
     Active Substance: TACROLIMUS
     Route: 048
  38. ANTITHYMOCYTE IMMUNOGLOBULIN [Suspect]
     Active Substance: THYMOCYTE IMMUNE GLOBULIN NOS
     Indication: TRANSPLANT
     Route: 065
  39. DACLIZUMAB [Suspect]
     Active Substance: DACLIZUMAB
     Route: 042
  40. CELLCEPT [Suspect]
     Active Substance: MYCOPHENOLATE MOFETIL\MYCOPHENOLATE MOFETIL HYDROCHLORIDE
     Indication: TRANSPLANT
     Route: 048
  41. CELLCEPT [Suspect]
     Active Substance: MYCOPHENOLATE MOFETIL\MYCOPHENOLATE MOFETIL HYDROCHLORIDE
     Route: 048
  42. CELLCEPT [Suspect]
     Active Substance: MYCOPHENOLATE MOFETIL\MYCOPHENOLATE MOFETIL HYDROCHLORIDE
     Route: 048
  43. ANTITHYMOCYTE IMMUNOGLOBULIN (RABBIT) [Suspect]
     Active Substance: LAPINE T-LYMPHOCYTE IMMUNE GLOBULIN
     Route: 005
  44. ANTITHYMOCYTE IMMUNOGLOBULIN (RABBIT) [Suspect]
     Active Substance: LAPINE T-LYMPHOCYTE IMMUNE GLOBULIN
     Route: 065
  45. ANTITHYMOCYTE IMMUNOGLOBULIN (RABBIT) [Suspect]
     Active Substance: LAPINE T-LYMPHOCYTE IMMUNE GLOBULIN
     Route: 065
  46. ANTITHYMOCYTE IMMUNOGLOBULIN (RABBIT) [Suspect]
     Active Substance: LAPINE T-LYMPHOCYTE IMMUNE GLOBULIN
     Route: 005
  47. ENBREL [Suspect]
     Active Substance: ETANERCEPT
     Route: 058
  48. ENBREL [Suspect]
     Active Substance: ETANERCEPT
     Route: 058
  49. PROGRAF [Suspect]
     Active Substance: TACROLIMUS
     Route: 048
  50. PROGRAF [Suspect]
     Active Substance: TACROLIMUS
     Route: 048
  51. PROGRAF [Suspect]
     Active Substance: TACROLIMUS
     Route: 048
  52. PROGRAF [Suspect]
     Active Substance: TACROLIMUS
     Route: 048
  53. PROGRAF [Suspect]
     Active Substance: TACROLIMUS
     Route: 048
  54. PROGRAF [Suspect]
     Active Substance: TACROLIMUS
     Route: 048
  55. ANTITHYMOCYTE IMMUNOGLOBULIN [Suspect]
     Active Substance: THYMOCYTE IMMUNE GLOBULIN NOS
     Route: 065
  56. DACLIZUMAB [Suspect]
     Active Substance: DACLIZUMAB
     Route: 065
  57. DACLIZUMAB [Suspect]
     Active Substance: DACLIZUMAB
     Route: 042
  58. CELLCEPT [Suspect]
     Active Substance: MYCOPHENOLATE MOFETIL\MYCOPHENOLATE MOFETIL HYDROCHLORIDE
     Route: 048
  59. CELLCEPT [Suspect]
     Active Substance: MYCOPHENOLATE MOFETIL\MYCOPHENOLATE MOFETIL HYDROCHLORIDE
     Route: 048
  60. ENBREL [Suspect]
     Active Substance: ETANERCEPT
     Indication: PRODUCT USED FOR UNKNOWN INDICATION
     Route: 058
  61. ENBREL [Suspect]
     Active Substance: ETANERCEPT
     Route: 058
  62. ENBREL [Suspect]
     Active Substance: ETANERCEPT
     Route: 058
  63. ENBREL [Suspect]
     Active Substance: ETANERCEPT
     Route: 058
  64. ENBREL [Suspect]
     Active Substance: ETANERCEPT
     Route: 048
  65. PROGRAF [Suspect]
     Active Substance: TACROLIMUS
     Route: 048
  66. PROGRAF [Suspect]
     Active Substance: TACROLIMUS
     Route: 048
  67. PROGRAF [Suspect]
     Active Substance: TACROLIMUS
     Route: 048
  68. PROGRAF [Suspect]
     Active Substance: TACROLIMUS
     Route: 048
  69. PROGRAF [Suspect]
     Active Substance: TACROLIMUS
     Route: 048
  70. PROGRAF [Suspect]
     Active Substance: TACROLIMUS
     Route: 048
  71. PROGRAF [Suspect]
     Active Substance: TACROLIMUS
     Route: 048
  72. EQUINE THYMOCYTE IMMUNE GLOBULIN [Suspect]
     Active Substance: EQUINE THYMOCYTE IMMUNE GLOBULIN
     Route: 065
  73. TEMAZEPAM. [Suspect]
     Active Substance: TEMAZEPAM
     Indication: PRODUCT USED FOR UNKNOWN INDICATION
     Route: 065
  74. ANTITHYMOCYTE IMMUNOGLOBULIN (RABBIT) [Suspect]
     Active Substance: LAPINE T-LYMPHOCYTE IMMUNE GLOBULIN
     Route: 058
  75. PROGRAF [Suspect]
     Active Substance: TACROLIMUS
     Route: 048
  76. PROGRAF [Suspect]
     Active Substance: TACROLIMUS
     Route: 048
  77. PROGRAF [Suspect]
     Active Substance: TACROLIMUS
     Route: 048
  78. PROGRAF [Suspect]
     Active Substance: TACROLIMUS
     Route: 048
  79. PROGRAF [Suspect]
     Active Substance: TACROLIMUS
     Route: 048
  80. PROGRAF [Suspect]
     Active Substance: TACROLIMUS
     Route: 048
  81. PROGRAF [Suspect]
     Active Substance: TACROLIMUS
     Route: 048
  82. TACROLIMUS. [Suspect]
     Active Substance: TACROLIMUS
     Route: 065
  83. DACLIZUMAB [Suspect]
     Active Substance: DACLIZUMAB
     Indication: PRODUCT USED FOR UNKNOWN INDICATION
     Route: 042
  84. CELLCEPT [Suspect]
     Active Substance: MYCOPHENOLATE MOFETIL\MYCOPHENOLATE MOFETIL HYDROCHLORIDE
     Route: 048
  85. CELLCEPT [Suspect]
     Active Substance: MYCOPHENOLATE MOFETIL\MYCOPHENOLATE MOFETIL HYDROCHLORIDE
     Route: 048
  86. CELLCEPT [Suspect]
     Active Substance: MYCOPHENOLATE MOFETIL\MYCOPHENOLATE MOFETIL HYDROCHLORIDE
     Route: 048
  87. ENBREL [Suspect]
     Active Substance: ETANERCEPT
     Route: 058
  88. ENBREL [Suspect]
     Active Substance: ETANERCEPT
     Route: 058
  89. ENBREL [Suspect]
     Active Substance: ETANERCEPT
     Route: 058
  90. ENBREL [Suspect]
     Active Substance: ETANERCEPT
     Route: 058
  91. ENBREL [Suspect]
     Active Substance: ETANERCEPT
     Route: 058
  92. ENBREL [Suspect]
     Active Substance: ETANERCEPT
     Route: 058
  93. PROGRAF [Suspect]
     Active Substance: TACROLIMUS
     Route: 048
  94. PROGRAF [Suspect]
     Active Substance: TACROLIMUS
     Route: 048
  95. PROGRAF [Suspect]
     Active Substance: TACROLIMUS
     Route: 048
  96. PROGRAF [Suspect]
     Active Substance: TACROLIMUS
     Route: 048
  97. PROGRAF [Suspect]
     Active Substance: TACROLIMUS
     Route: 048
  98. PROGRAF [Suspect]
     Active Substance: TACROLIMUS
     Route: 048
  99. PROGRAF [Suspect]
     Active Substance: TACROLIMUS
     Route: 048
  100. PROGRAF [Suspect]
     Active Substance: TACROLIMUS
     Route: 048
  101. TACROLIMUS. [Suspect]
     Active Substance: TACROLIMUS
     Route: 065
  102. ANTITHYMOCYTE IMMUNOGLOBULIN (HORSE) [Suspect]
     Active Substance: EQUINE THYMOCYTE IMMUNE GLOBULIN
     Route: 005
  103. GLICLAZIDE [Suspect]
     Active Substance: GLICLAZIDE
     Indication: PRODUCT USED FOR UNKNOWN INDICATION
     Route: 042
  104. DACLIZUMAB [Suspect]
     Active Substance: DACLIZUMAB
     Route: 042
  105. CELLCEPT [Suspect]
     Active Substance: MYCOPHENOLATE MOFETIL\MYCOPHENOLATE MOFETIL HYDROCHLORIDE
     Route: 048
  106. CELLCEPT [Suspect]
     Active Substance: MYCOPHENOLATE MOFETIL\MYCOPHENOLATE MOFETIL HYDROCHLORIDE
     Indication: TRANSPLANT
     Route: 048
  107. ENBREL [Suspect]
     Active Substance: ETANERCEPT
     Route: 058
  108. ENBREL [Suspect]
     Active Substance: ETANERCEPT
     Route: 058
  109. ENBREL [Suspect]
     Active Substance: ETANERCEPT
     Route: 058
  110. ENBREL [Suspect]
     Active Substance: ETANERCEPT
     Route: 058
  111. ENBREL [Suspect]
     Active Substance: ETANERCEPT
     Route: 058
  112. ENBREL [Suspect]
     Active Substance: ETANERCEPT
     Route: 058
  113. ENBREL [Suspect]
     Active Substance: ETANERCEPT
     Route: 058
  114. NEORAL [Suspect]
     Active Substance: CYCLOSPORINE
     Indication: TRANSPLANT
     Route: 065
  115. PROGRAF [Suspect]
     Active Substance: TACROLIMUS
     Route: 048
  116. PROGRAF [Suspect]
     Active Substance: TACROLIMUS
     Route: 048
  117. PROGRAF [Suspect]
     Active Substance: TACROLIMUS
     Route: 048
  118. PROGRAF [Suspect]
     Active Substance: TACROLIMUS
     Route: 048
  119. REMICADE [Suspect]
     Active Substance: INFLIXIMAB
     Indication: PRODUCT USED FOR UNKNOWN INDICATION
     Route: 042
  120. TACROLIMUS. [Suspect]
     Active Substance: TACROLIMUS
     Route: 065
  121. ANTITHYMOCYTE IMMUNOGLOBULIN (HORSE) [Suspect]
     Active Substance: EQUINE THYMOCYTE IMMUNE GLOBULIN
     Indication: TRANSPLANT
     Route: 005
  122. EQUINE THYMOCYTE IMMUNE GLOBULIN [Suspect]
     Active Substance: EQUINE THYMOCYTE IMMUNE GLOBULIN
     Indication: PRODUCT USED FOR UNKNOWN INDICATION
     Route: 065
  123. CELLCEPT [Suspect]
     Active Substance: MYCOPHENOLATE MOFETIL\MYCOPHENOLATE MOFETIL HYDROCHLORIDE
     Route: 048
  124. ENBREL [Suspect]
     Active Substance: ETANERCEPT
     Route: 058
  125. ENBREL [Suspect]
     Active Substance: ETANERCEPT
     Route: 058
  126. ENBREL [Suspect]
     Active Substance: ETANERCEPT
     Route: 058
  127. ENBREL [Suspect]
     Active Substance: ETANERCEPT
     Route: 058
  128. PROGRAF [Suspect]
     Active Substance: TACROLIMUS
     Route: 048
  129. PROGRAF [Suspect]
     Active Substance: TACROLIMUS
     Route: 048
  130. PROGRAF [Suspect]
     Active Substance: TACROLIMUS
     Route: 048
  131. PROGRAF [Suspect]
     Active Substance: TACROLIMUS
     Route: 048
  132. PROGRAF [Suspect]
     Active Substance: TACROLIMUS
     Route: 048
  133. RAPAMUNE [Suspect]
     Active Substance: SIROLIMUS
     Indication: TRANSPLANT
     Route: 065
  134. TACROLIMUS. [Suspect]
     Active Substance: TACROLIMUS
     Indication: PRODUCT USED FOR UNKNOWN INDICATION
     Route: 048
  135. TACROLIMUS. [Suspect]
     Active Substance: TACROLIMUS
     Route: 065
  136. TACROLIMUS. [Suspect]
     Active Substance: TACROLIMUS
     Route: 048
  137. TACROLIMUS. [Suspect]
     Active Substance: TACROLIMUS
     Route: 048
  138. ANTITHYMOCYTE IMMUNOGLOBULIN [Suspect]
     Active Substance: THYMOCYTE IMMUNE GLOBULIN NOS
     Route: 065

REACTIONS (16)
  - Pain [Not Recovered/Not Resolved]
  - Incorrect route of product administration [Unknown]
  - Alopecia [Not Recovered/Not Resolved]
  - Transplant rejection [Not Recovered/Not Resolved]
  - Product use issue [Unknown]
  - Liver function test abnormal [Not Recovered/Not Resolved]
  - Transplant dysfunction [Not Recovered/Not Resolved]
  - Condition aggravated [Not Recovered/Not Resolved]
  - Sleep disorder due to general medical condition, insomnia type [Not Recovered/Not Resolved]
  - Acne [Not Recovered/Not Resolved]
  - Pneumonia [Not Recovered/Not Resolved]
  - Rheumatoid arthritis [Not Recovered/Not Resolved]
  - Loss of personal independence in daily activities [Not Recovered/Not Resolved]
  - Ovarian cyst [Not Recovered/Not Resolved]
  - Overdose [Unknown]
  - Drug ineffective [Not Recovered/Not Resolved]
